FAERS Safety Report 14347716 (Version 5)
Quarter: 2019Q3

REPORT INFORMATION
  Report Type: Report from Study
  Country: CA (occurrence: CA)
  Receive Date: 20180103
  Receipt Date: 20190828
  Transmission Date: 20191004
  Serious: Yes (Hospitalization, Other)
  Sender: FDA-Public Use
  Company Number: CA-TAKEDA-2017TUS001617

PATIENT
  Age: 54 Year
  Sex: Female

DRUGS (9)
  1. PRISTIQ EXTENDED-RELEASE [Concomitant]
     Active Substance: DESVENLAFAXINE SUCCINATE
     Dosage: UNK, QD
  2. ADALAT [Concomitant]
     Active Substance: NIFEDIPINE
     Dosage: UNK, QD
  3. NYSTATIN. [Concomitant]
     Active Substance: NYSTATIN
     Indication: CANDIDA INFECTION
     Dosage: UNK
  4. VEDOLIZUMAB [Suspect]
     Active Substance: VEDOLIZUMAB
     Dosage: 300 MILLIGRAM
     Route: 042
  5. SYNTHROID [Concomitant]
     Active Substance: LEVOTHYROXINE SODIUM
     Dosage: UNK, QD
  6. VEDOLIZUMAB [Suspect]
     Active Substance: VEDOLIZUMAB
     Indication: CROHN^S DISEASE
     Dosage: 300 MILLIGRAM
     Route: 042
     Dates: start: 20160622
  7. VEDOLIZUMAB [Suspect]
     Active Substance: VEDOLIZUMAB
     Dosage: 300 MILLIGRAM
     Route: 042
  8. VEDOLIZUMAB [Suspect]
     Active Substance: VEDOLIZUMAB
     Dosage: 300 MILLIGRAM
     Route: 042
     Dates: end: 20190509
  9. TECTA [Suspect]
     Active Substance: PANTOPRAZOLE MAGNESIUM
     Indication: PRODUCT USED FOR UNKNOWN INDICATION
     Dosage: UNK UNK, QD
     Route: 065
     Dates: start: 2010

REACTIONS (7)
  - Rectal fissure [Unknown]
  - Gastrointestinal viral infection [Unknown]
  - Infusion site extravasation [Unknown]
  - Faecal calprotectin increased [Recovered/Resolved]
  - Drug ineffective [Unknown]
  - Poor venous access [Unknown]
  - Infusion site swelling [Unknown]

NARRATIVE: CASE EVENT DATE: 20170119
